FAERS Safety Report 19017526 (Version 3)
Quarter: 2021Q2

REPORT INFORMATION
  Report Type: Spontaneous
  Country: US (occurrence: US)
  Receive Date: 20210317
  Receipt Date: 20210525
  Transmission Date: 20210717
  Serious: Yes (Other)
  Sender: FDA-Public Use
  Company Number: US-UROGEN PHARMA LTD.-2021-UGN-000010

PATIENT
  Age: 84 Year
  Sex: Female

DRUGS (6)
  1. JELMYTO [Suspect]
     Active Substance: MITOMYCIN
     Dosage: 1 TIMES PER WEEK (INSTILLATION)
     Dates: start: 20210317, end: 20210317
  2. JELMYTO [Suspect]
     Active Substance: MITOMYCIN
     Dosage: 1 TIMES PER WEEK (INSTILLATION)
     Dates: start: 20210324, end: 20210324
  3. JELMYTO [Suspect]
     Active Substance: MITOMYCIN
     Dosage: 1 TIMES PER WEEK (INSTILLATION)
     Dates: start: 20210224, end: 20210224
  4. JELMYTO [Suspect]
     Active Substance: MITOMYCIN
     Dosage: 15 MILLILITER 1 TIMES PER WEEK (INSTILLATION)
     Dates: start: 20210303, end: 20210303
  5. JELMYTO [Suspect]
     Active Substance: MITOMYCIN
     Dosage: 1 TIMES PER WEEK (INSTILLATION)
     Dates: start: 20210331, end: 20210331
  6. JELMYTO [Suspect]
     Active Substance: MITOMYCIN
     Indication: TRANSITIONAL CELL CANCER OF THE RENAL PELVIS AND URETER
     Dosage: 1 TIMES PER WEEK (INSTILLATION)
     Dates: start: 20210217, end: 20210217

REACTIONS (5)
  - Delirium [Not Recovered/Not Resolved]
  - Dysuria [Not Recovered/Not Resolved]
  - Insomnia [Not Recovered/Not Resolved]
  - Micturition urgency [Not Recovered/Not Resolved]
  - Pollakiuria [Not Recovered/Not Resolved]

NARRATIVE: CASE EVENT DATE: 20210303
